FAERS Safety Report 6705996-0 (Version None)
Quarter: 2010Q2

REPORT INFORMATION
  Report Type: 
  Country: None (occurrence: None)
  Receive Date: 20100423
  Receipt Date: 20100111
  Transmission Date: 20101027
  Serious: No
  Sender: FDA-Public Use
  Company Number: ALL1-2010-00130

PATIENT
  Age: 9 Year
  Sex: Male
  Weight: 27.2 kg

DRUGS (1)
  1. VYVANSE [Suspect]
     Indication: ATTENTION DEFICIT/HYPERACTIVITY DISORDER
     Dosage: 30 MG, ON SCHOOL DAYS, ORAL
     Route: 048
     Dates: start: 20090901

REACTIONS (1)
  - RHINORRHOEA [None]
